FAERS Safety Report 7079071-2 (Version None)
Quarter: 2010Q4

REPORT INFORMATION
  Report Type: 
  Country: None (occurrence: None)
  Receive Date: 20101102
  Receipt Date: 20101026
  Transmission Date: 20110411
  Serious: Yes (Hospitalization)
  Sender: FDA-Public Use
  Company Number: US-ROCHE-730437

PATIENT
  Sex: Male
  Weight: 93 kg

DRUGS (9)
  1. BEVACIZUMAB [Suspect]
     Dosage: LAST DOSE PRIOR TO SAE 14 SEPTEMBER 2010, CY15 D 11
     Route: 042
     Dates: start: 20091123
  2. ALIMTA [Suspect]
     Dosage: LAST DOSE PRIOR TO SAE 14 SEPTEMBER 2010, CY15 D 11
     Route: 042
     Dates: start: 20091123
  3. LORTAB [Concomitant]
     Indication: CANCER PAIN
     Dates: start: 20091001
  4. VITAMIN B-12 [Concomitant]
     Dosage: INDICATION: TRIAL, DOSE: SHOT/1000 MG
     Dates: start: 20091116
  5. FOLIC ACID [Concomitant]
     Dosage: INDICATION: TRIAL, DOSE: SHOT/ 1000 MCG
     Dates: start: 20091116
  6. FAMOTIDINE [Concomitant]
     Dosage: AS NECESSARY
     Dates: start: 19700101
  7. ALBUTEROL SULFATE [Concomitant]
     Dates: start: 20050101
  8. SYMBICORT [Concomitant]
     Dosage: DOSE: 160/ 4.5
     Dates: start: 20090101
  9. FUROSEMIDE [Concomitant]
     Route: 048
     Dates: start: 20091101

REACTIONS (1)
  - CHEST PAIN [None]
